FAERS Safety Report 10529130 (Version 2)
Quarter: 2014Q4

REPORT INFORMATION
  Report Type: Spontaneous
  Country: AU (occurrence: None)
  Receive Date: 20141006
  Receipt Date: 20141031
  Transmission Date: 20150528
  Serious: Yes (Hospitalization)
  Sender: FDA-Public Use
  Company Number: GAM-326-14-AU

PATIENT
  Age: 64 Year
  Sex: Male

DRUGS (5)
  1. OCTAGAM IMMUNE GLOBULIN (HUMAN) [Suspect]
     Active Substance: HUMAN IMMUNOGLOBULIN G
     Indication: KIDNEY TRANSPLANT REJECTION
     Dosage: (3X 1/ CYCLICAL),  (NOT OTHERWISE SPECIFIED)
     Route: 042
     Dates: start: 20140916, end: 20140922
  2. HUMAN ALBUMIN [Concomitant]
     Active Substance: ALBUMIN (HUMAN)
  3. PROMETHAZINE [Concomitant]
     Active Substance: PROMETHAZINE\PROMETHAZINE HYDROCHLORIDE
  4. HYDROCORTISONE. [Concomitant]
     Active Substance: HYDROCORTISONE
  5. PARACETAMOL [Concomitant]
     Active Substance: ACETAMINOPHEN

REACTIONS (12)
  - Nausea [None]
  - Back pain [None]
  - Dyskinesia [None]
  - Tremor [None]
  - Tachycardia [None]
  - Oxygen saturation decreased [None]
  - Malaise [None]
  - Pallor [None]
  - Feeling cold [None]
  - Agitation [None]
  - Flank pain [None]
  - Dyspnoea [None]

NARRATIVE: CASE EVENT DATE: 20140916
